FAERS Safety Report 4501238-5 (Version None)
Quarter: 2004Q3

REPORT INFORMATION
  Report Type: 
  Country: None (occurrence: None)
  Receive Date: 20040927
  Receipt Date: 20040611
  Transmission Date: 20050211
  Serious: No
  Sender: FDA-Public Use
  Company Number: US_0406103701

PATIENT
  Age: 13 Year
  Sex: Female
  Weight: 56 kg

DRUGS (2)
  1. STRATTERA [Suspect]
     Indication: ATTENTION DEFICIT/HYPERACTIVITY DISORDER
     Dates: start: 20040501
  2. CONCERTA [Concomitant]

REACTIONS (2)
  - ABNORMAL BEHAVIOUR [None]
  - EMOTIONAL DISORDER [None]
